FAERS Safety Report 9011059 (Version 2)
Quarter: 2013Q1

REPORT INFORMATION
  Report Type: Report from Study
  Country: IE (occurrence: IE)
  Receive Date: 20130109
  Receipt Date: 20130124
  Transmission Date: 20140127
  Serious: Yes (Hospitalization)
  Sender: FDA-Public Use
  Company Number: IE-GLAXOSMITHKLINE-B0841197C

PATIENT
  Age: 31 Year
  Sex: Female
  Weight: 60.9 kg

DRUGS (7)
  1. LAPATINIB [Suspect]
     Indication: BREAST NEOPLASM
     Route: 048
     Dates: start: 20120831
  2. TAXOTERE [Suspect]
     Indication: BREAST NEOPLASM
     Dosage: 100MG CYCLIC
     Route: 042
     Dates: start: 20120831
  3. CARBOPLATIN [Suspect]
     Indication: BREAST NEOPLASM
     Dosage: 740MG CYCLIC
     Route: 042
     Dates: start: 20120831
  4. HERCEPTIN [Suspect]
     Indication: BREAST NEOPLASM
     Dosage: 483MG CYCLIC
     Route: 042
     Dates: start: 20120831
  5. DEXAMETHASONE [Concomitant]
     Indication: PROPHYLAXIS
     Route: 048
     Dates: start: 20121227, end: 20121229
  6. ONDANSETRON [Concomitant]
     Indication: PROPHYLAXIS
     Route: 048
     Dates: start: 20121028, end: 20121230
  7. NEULASTA [Concomitant]
     Indication: PROPHYLAXIS
     Route: 058
     Dates: start: 20121229, end: 20121229

REACTIONS (1)
  - Haematuria [Recovered/Resolved]
